FAERS Safety Report 9556581 (Version 1)
Quarter: 2013Q3

REPORT INFORMATION
  Report Type: Spontaneous
  Country: US (occurrence: None)
  Receive Date: 20130724
  Receipt Date: 20130724
  Transmission Date: 20140515
  Serious: No
  Sender: FDA-Public Use
  Company Number: PHEH2013US006754

PATIENT
  Sex: Male

DRUGS (14)
  1. GILENYA (FINGOLIMOD) CAPSULE, 0.5MG [Suspect]
     Dosage: 0.5 MG, UNK, ORAL
     Route: 048
  2. CYMBALTA (DULOXETINE HYDROCHLORIDE) [Concomitant]
  3. NAPROSYN (NAPROXEN) [Concomitant]
  4. LIPITOR (ATORVASTATIN CALCIUM) [Concomitant]
  5. LYRICA (PREGABALIN) [Concomitant]
  6. DIOVAN (VALSARTAN) [Concomitant]
  7. CLONAZEPAM (CLONAZEPAM) (CLONAZEPAM) [Concomitant]
  8. BACLOFEN (BACLOFEN) [Concomitant]
  9. OXYCODONE (OXYCODONE) [Concomitant]
  10. FAMPRIDINE (FAMPRIDINE) [Concomitant]
  11. VITAMIN D (ERGOCALCIFEROL) [Concomitant]
  12. MULTI-VIT (VITAMINS NOS) [Concomitant]
  13. OMEGA /ARG/ (CARBINOXAMINE MALEATE) [Concomitant]
  14. PROVIGIL (MODAFINIL) [Concomitant]

REACTIONS (3)
  - Urinary retention [None]
  - Fatigue [None]
  - Asthenia [None]
